FAERS Safety Report 14360856 (Version 1)
Quarter: 2018Q1

REPORT INFORMATION
  Report Type: Spontaneous
  Country: US (occurrence: US)
  Receive Date: 20180107
  Receipt Date: 20180107
  Transmission Date: 20180509
  Serious: Yes (Other)
  Sender: FDA-Public Use
  Company Number: US-LEXICON PHARMACEUTICALS, INC-17-1606-01357

PATIENT
  Sex: Male

DRUGS (8)
  1. MORPHINE SULFATE. [Concomitant]
     Active Substance: MORPHINE SULFATE
  2. OCTREOTIDE. [Concomitant]
     Active Substance: OCTREOTIDE
  3. OLANZAPINE. [Concomitant]
     Active Substance: OLANZAPINE
  4. POTASSIUM CITRATE ER [Concomitant]
  5. AFINITOR [Concomitant]
     Active Substance: EVEROLIMUS
  6. LOMOTIL [Concomitant]
     Active Substance: ATROPINE SULFATE\DIPHENOXYLATE HYDROCHLORIDE
  7. TELOTRISTAT ETHYL [Suspect]
     Active Substance: TELOTRISTAT ETHYL
     Indication: CARCINOID SYNDROME
     Route: 048
     Dates: start: 20170826
  8. MARINOL (ALLOPURINOL) [Concomitant]
     Active Substance: ALLOPURINOL

REACTIONS (3)
  - Rectal fissure [None]
  - Malignant neoplasm progression [Not Recovered/Not Resolved]
  - Scan abnormal [None]

NARRATIVE: CASE EVENT DATE: 2017
